FAERS Safety Report 11442812 (Version 4)
Quarter: 2015Q3

REPORT INFORMATION
  Report Type: Spontaneous
  Country: JP (occurrence: JP)
  Receive Date: 20150901
  Receipt Date: 20150922
  Transmission Date: 20151125
  Serious: Yes (Hospitalization, Other)
  Sender: FDA-Public Use
  Company Number: JP-009507513-1508JPN013799

PATIENT
  Age: 48 Year
  Sex: Female

DRUGS (5)
  1. PROPOFOL. [Suspect]
     Active Substance: PROPOFOL
     Indication: INDUCTION AND MAINTENANCE OF ANAESTHESIA
     Dosage: DAILY DOSE UNKNOWN, TOTAL DOSE: 910 MG
     Route: 042
  2. THERAPY UNSPECIFIED [Suspect]
     Active Substance: UNSPECIFIED INGREDIENT
     Dosage: SUPPLEMENTAL FLUID: DAILY DOSE UNKNOWN. TOTAL DOSE 600ML
     Route: 042
  3. FENTANYL. [Suspect]
     Active Substance: FENTANYL
     Indication: INDUCTION AND MAINTENANCE OF ANAESTHESIA
     Dosage: DAILY DOSE UNKNOWN, TOTAL DOSE: 450 MICROGRAM
     Route: 065
  4. ESLAX INTRAVENOUS 25MG/2.5ML [Suspect]
     Active Substance: ROCURONIUM BROMIDE
     Indication: INDUCTION AND MAINTENANCE OF ANAESTHESIA
     Dosage: DAILY DOSE UNKNOWN, TOTAL DOSE 75 MG
     Route: 042
  5. PITRESSIN [Suspect]
     Active Substance: VASOPRESSIN
     Indication: HAEMORRHAGE
     Dosage: DAILY DOSAGE UNKNOWN
     Route: 051

REACTIONS (1)
  - Acute kidney injury [Recovered/Resolved]
